FAERS Safety Report 5904327-3 (Version None)
Quarter: 2008Q3

REPORT INFORMATION
  Report Type: 
  Country: None (occurrence: None)
  Receive Date: 20080909
  Receipt Date: 20080519
  Transmission Date: 20090109
  Serious: Yes (Death, Hospitalization)
  Sender: FDA-Public Use
  Company Number: 163-20785-08031681

PATIENT
  Age: 72 Year
  Sex: Male

DRUGS (6)
  1. THALOMID [Suspect]
     Indication: MULTIPLE MYELOMA
     Dosage: 100 MG, ORAL ; 200 MG, ORAL ; 100 MG, ORAL ; 200 MG, ORAL
     Route: 048
     Dates: start: 20040525, end: 20050101
  2. THALOMID [Suspect]
     Indication: MULTIPLE MYELOMA
     Dosage: 100 MG, ORAL ; 200 MG, ORAL ; 100 MG, ORAL ; 200 MG, ORAL
     Route: 048
     Dates: start: 20070509, end: 20070901
  3. THALOMID [Suspect]
     Indication: MULTIPLE MYELOMA
     Dosage: 100 MG, ORAL ; 200 MG, ORAL ; 100 MG, ORAL ; 200 MG, ORAL
     Route: 048
     Dates: start: 20070927, end: 20071001
  4. THALOMID [Suspect]
     Indication: MULTIPLE MYELOMA
     Dosage: 100 MG, ORAL ; 200 MG, ORAL ; 100 MG, ORAL ; 200 MG, ORAL
     Route: 048
     Dates: start: 20071003
  5. DEXAMETHASONE TAB [Concomitant]
  6. COUMADIN [Concomitant]

REACTIONS (2)
  - HYPOPHAGIA [None]
  - MULTIPLE MYELOMA [None]
